FAERS Safety Report 5225915-6 (Version None)
Quarter: 2007Q1

REPORT INFORMATION
  Report Type: 
  Country: None (occurrence: None)
  Receive Date: 20070129
  Receipt Date: 20070119
  Transmission Date: 20070707
  Serious: Yes (Hospitalization)
  Sender: FDA-Public Use
  Company Number: GXKR2007DE00574

PATIENT
  Age: 55 Year
  Sex: Female
  Weight: 50 kg

DRUGS (3)
  1. ISONIAZID [Suspect]
     Dosage: ORAL
     Route: 048
  2. RIFAMPICIN [Concomitant]
  3. ETHAMBUTOL (NGX) (ETHAMBUTOL) [Concomitant]

REACTIONS (13)
  - APNOEA [None]
  - BLOOD CREATINE PHOSPHOKINASE INCREASED [None]
  - COAGULATION TEST ABNORMAL [None]
  - CONVULSION [None]
  - CYANOSIS [None]
  - ENURESIS [None]
  - HEPATOTOXICITY [None]
  - INTENTIONAL OVERDOSE [None]
  - INTERNATIONAL NORMALISED RATIO INCREASED [None]
  - METABOLIC ACIDOSIS [None]
  - RESPIRATORY FAILURE [None]
  - SUICIDE ATTEMPT [None]
  - VOMITING [None]
